FAERS Safety Report 19029310 (Version 1)
Quarter: 2021Q1

REPORT INFORMATION
  Report Type: Spontaneous
  Country: JP (occurrence: JP)
  Receive Date: 20210318
  Receipt Date: 20210318
  Transmission Date: 20210420
  Serious: Yes (Hospitalization, Disabling, Other)
  Sender: FDA-Public Use
  Company Number: JP-BAYER-2020-223551

PATIENT
  Age: 81 Year
  Sex: Male
  Weight: 62.4 kg

DRUGS (14)
  1. NEXAVAR [Suspect]
     Active Substance: SORAFENIB
     Indication: RENAL CELL CARCINOMA
     Dosage: 800MG PER DAILY
     Route: 048
     Dates: start: 20200912, end: 20201001
  2. ZOLPIDEM TARTRATE. [Concomitant]
     Active Substance: ZOLPIDEM TARTRATE
     Indication: INSOMNIA
     Dosage: 10MG  PER DAILY
     Route: 048
     Dates: end: 20201001
  3. ETIZOLAM [Concomitant]
     Active Substance: ETIZOLAM
     Indication: INSOMNIA
     Dosage: 0.5MG  PER DAILY
     Route: 048
     Dates: end: 20201001
  4. ILUAMIX [Concomitant]
     Indication: HYPERTENSION
     Dosage: 1DF  PER DAILY
     Route: 048
     Dates: end: 20201001
  5. BIASAN [Concomitant]
     Indication: GASTROINTESTINAL DISORDER
     Dosage: 2.2G PER DAILY
     Route: 048
     Dates: end: 20201001
  6. DILAZEP DIHYDROCHLORIDE [Concomitant]
     Active Substance: DILAZEP DIHYDROCHLORIDE
     Dosage: 300MG PER DAILY
     Route: 048
     Dates: end: 20201001
  7. NEXAVAR [Suspect]
     Active Substance: SORAFENIB
     Indication: METASTASES TO LUNG
  8. UBIDECARENONE. [Concomitant]
     Active Substance: UBIDECARENONE
     Indication: CARDIAC FAILURE
     Dosage: DAILY DOSE 30 MG
     Route: 048
     Dates: end: 20201001
  9. DICETAMIN [Concomitant]
     Active Substance: CETOTIAMINE HYDROCHLORIDE
     Indication: VITAMIN B1 DEFICIENCY
     Dosage: DAILY DOSE 75 MG
     Route: 048
     Dates: end: 20201001
  10. ADENOSINE TRIPHOSPHATE [ADENOSINE TRIPHOSPHATE, DISODIUM SALT] [Concomitant]
     Indication: CARDIAC FAILURE
     Dosage: 60MG PER DAILY
     Route: 048
     Dates: end: 20201001
  11. VALHYDIO [Concomitant]
     Active Substance: HYDROCHLOROTHIAZIDE\VALSARTAN
     Indication: HYPERTENSION
     Dosage: 1DF  PER DAILY
     Route: 048
     Dates: end: 20201001
  12. CARVEDILOL. [Concomitant]
     Active Substance: CARVEDILOL
     Indication: HYPERTENSION
     Dosage: 10MG PER DAILY
     Route: 048
     Dates: end: 20201001
  13. ULCERLMIN [Concomitant]
     Active Substance: SUCRALFATE
     Indication: GASTRITIS PROPHYLAXIS
     Dosage: 2G PER DAILY
     Route: 048
     Dates: end: 20201001
  14. URIADEC [Concomitant]
     Active Substance: TOPIROXOSTAT
     Indication: GOUT
     Dosage: 40MG PER DAILY
     Route: 048
     Dates: end: 20201001

REACTIONS (8)
  - Haematochezia [Recovered/Resolved with Sequelae]
  - Body temperature increased [Recovered/Resolved with Sequelae]
  - Therapy interrupted [None]
  - Large intestine perforation [Recovered/Resolved with Sequelae]
  - Diarrhoea [Recovered/Resolved with Sequelae]
  - Stoma creation [None]
  - Abdominal pain [Recovered/Resolved with Sequelae]
  - Diverticulitis [None]

NARRATIVE: CASE EVENT DATE: 20201001
